FAERS Safety Report 15106446 (Version 1)
Quarter: 2018Q3

REPORT INFORMATION
  Report Type: Spontaneous
  Country: AE (occurrence: AE)
  Receive Date: 20180704
  Receipt Date: 20180704
  Transmission Date: 20181010
  Serious: Yes (Hospitalization, Other)
  Sender: FDA-Public Use
  Company Number: AE-ASTRAZENECA-2018SE85118

PATIENT
  Age: 50 Year
  Sex: Female

DRUGS (1)
  1. TAGRISSO [Suspect]
     Active Substance: OSIMERTINIB
     Indication: LUNG NEOPLASM MALIGNANT
     Dosage: 80.0MG UNKNOWN
     Route: 048
     Dates: end: 20180606

REACTIONS (3)
  - Venous thrombosis limb [Unknown]
  - Malignant neoplasm progression [Unknown]
  - Pulmonary embolism [Unknown]
